FAERS Safety Report 18922806 (Version 1)
Quarter: 2021Q1

REPORT INFORMATION
  Report Type: Spontaneous
  Country: US (occurrence: US)
  Receive Date: 20210222
  Receipt Date: 20210222
  Transmission Date: 20210420
  Serious: No
  Sender: FDA-Public Use
  Company Number: None

PATIENT
  Age: 37 Year
  Sex: Female
  Weight: 60.75 kg

DRUGS (8)
  1. BOTOX 31 [Concomitant]
  2. ABILIFY [Concomitant]
     Active Substance: ARIPIPRAZOLE
  3. ASPIRIN 81 MG [Concomitant]
     Active Substance: ASPIRIN
  4. MODAFANIL [Concomitant]
     Active Substance: MODAFINIL
  5. AJOVY [Suspect]
     Active Substance: FREMANEZUMAB-VFRM
     Indication: MIGRAINE
     Dosage: ?          QUANTITY:1 INJECTION(S);OTHER FREQUENCY:ONCE MONTHLY;?
     Route: 058
     Dates: start: 20200815
  6. TIZANIDINE. [Concomitant]
     Active Substance: TIZANIDINE
  7. BUPROPION XL [Concomitant]
     Active Substance: BUPROPION
  8. HAIR,SKIN AND NAILS GUMMIES [Concomitant]

REACTIONS (6)
  - Injection site swelling [None]
  - Urticaria [None]
  - Injection site erythema [None]
  - Injection site reaction [None]
  - Injection site warmth [None]
  - Injection site pruritus [None]

NARRATIVE: CASE EVENT DATE: 20210222
